FAERS Safety Report 9187419 (Version 1)
Quarter: 2012Q4

REPORT INFORMATION
  Report Type: 
  Country: AR (occurrence: AR)
  Receive Date: 20121121
  Receipt Date: 20121121
  Transmission Date: 20130627
  Serious: Yes (Other)
  Sender: FDA-Public Use
  Company Number: AR-BIOMARINP-003231

PATIENT
  Age: 6 Year
  Sex: Male
  Weight: 14.6 kg

DRUGS (3)
  1. NAGLAZYME [Suspect]
     Indication: MUCOPOLYSACCHARIDOSIS VI
     Route: 041
     Dates: start: 20101102, end: 201109
  2. NAGLAZYME [Suspect]
     Route: 041
     Dates: start: 201202, end: 201203
  3. NAGLAZYME [Suspect]
     Route: 041
     Dates: start: 201209

REACTIONS (1)
  - Blindness [Not Recovered/Not Resolved]
